FAERS Safety Report 5285357-4 (Version None)
Quarter: 2007Q2

REPORT INFORMATION
  Report Type: 
  Country: None (occurrence: None)
  Receive Date: 20070403
  Receipt Date: 20070322
  Transmission Date: 20071010
  Serious: Yes (Hospitalization)
  Sender: FDA-Public Use
  Company Number: FR-PFIZER INC-2007024251

PATIENT

DRUGS (1)
  1. LYRICA [Suspect]

REACTIONS (2)
  - ABNORMAL BEHAVIOUR [None]
  - COORDINATION ABNORMAL [None]
